FAERS Safety Report 8585354-7 (Version None)
Quarter: 2012Q3

REPORT INFORMATION
  Report Type: 
  Country: None (occurrence: None)
  Receive Date: 20120810
  Receipt Date: 20120808
  Transmission Date: 20120928
  Serious: Yes (Other)
  Sender: FDA-Public Use
  Company Number: US-PFIZER INC-2012194507

PATIENT
  Age: 47 Year
  Sex: Male
  Weight: 109 kg

DRUGS (1)
  1. XANAX [Suspect]
     Dosage: UNK
     Route: 048
     Dates: start: 20110218

REACTIONS (3)
  - AGGRESSION [None]
  - HALLUCINATION, AUDITORY [None]
  - DRUG ABUSE [None]
